FAERS Safety Report 4996146-X (Version None)
Quarter: 2006Q2

REPORT INFORMATION
  Report Type: 
  Country: None (occurrence: None)
  Receive Date: 20060504
  Receipt Date: 20060426
  Transmission Date: 20061013
  Serious: Yes (Hospitalization)
  Sender: FDA-Public Use
  Company Number: 2006-04-1934

PATIENT
  Age: 58 Year
  Sex: Male

DRUGS (7)
  1. TEMODAL [Suspect]
     Indication: GLIOBLASTOMA
     Dosage: ORAL
     Route: 048
     Dates: start: 20060209, end: 20060323
  2. TEGRETOL [Suspect]
     Dosage: ORAL
     Route: 048
     Dates: start: 20060225, end: 20060323
  3. LEXOMIL  (BROMAZEPAM) TABLETS [Suspect]
     Dosage: ORAL
     Route: 048
     Dates: end: 20060323
  4. ACETAMINOPHEN [Suspect]
     Dosage: ORAL
     Route: 048
     Dates: end: 20060323
  5. ZOLOFT [Suspect]
     Dosage: ORAL
     Route: 048
     Dates: start: 20060225, end: 20060323
  6. NEXIUM [Suspect]
     Dosage: ORAL
     Route: 048
     Dates: end: 20060323
  7. RADIATION THERAPY [Concomitant]

REACTIONS (2)
  - HERPES VIRUS INFECTION [None]
  - TOXIC SKIN ERUPTION [None]
